FAERS Safety Report 14234450 (Version 3)
Quarter: 2017Q4

REPORT INFORMATION
  Report Type: Spontaneous
  Country: IT (occurrence: IT)
  Receive Date: 20171129
  Receipt Date: 20171201
  Transmission Date: 20180321
  Serious: Yes (Disabling)
  Sender: FDA-Public Use
  Company Number: IT-009507513-1709ITA000132

PATIENT
  Age: 65 Year
  Sex: Female

DRUGS (5)
  1. BLOPRESID [Concomitant]
     Active Substance: CANDESARTAN CILEXETIL\HYDROCHLOROTHIAZIDE
     Indication: HYPERTENSION
     Dosage: 16 MG /12.5 MG, DAILY
     Route: 048
     Dates: end: 201705
  2. ZETIA [Suspect]
     Active Substance: EZETIMIBE
     Indication: HYPERCHOLESTEROLAEMIA
     Dosage: 10 MG, DAILY
     Route: 048
     Dates: start: 20161001
  3. METFORAL [Concomitant]
     Active Substance: METFORMIN HYDROCHLORIDE
     Indication: TYPE 2 DIABETES MELLITUS
     Dosage: 500 MG, TWICE DAILY
     Route: 048
  4. PRISMA (MESOGLYCAN) [Suspect]
     Active Substance: GLYCOSAMINOGLYCANS
     Indication: VASCULAR CALCIFICATION
  5. PRISMA (MESOGLYCAN) [Suspect]
     Active Substance: GLYCOSAMINOGLYCANS
     Indication: PERIPHERAL VENOUS DISEASE
     Dosage: 50 MG, DAILY
     Route: 048
     Dates: start: 20161001

REACTIONS (19)
  - Tinnitus [Not Recovered/Not Resolved]
  - Gingival bleeding [Not Recovered/Not Resolved]
  - Agitation [Unknown]
  - Gait disturbance [Not Recovered/Not Resolved]
  - Vertigo [Not Recovered/Not Resolved]
  - Tachycardia [Not Recovered/Not Resolved]
  - Skin burning sensation [Not Recovered/Not Resolved]
  - Swelling face [Recovering/Resolving]
  - Dry mouth [Not Recovered/Not Resolved]
  - Peripheral swelling [Not Recovered/Not Resolved]
  - Language disorder [Not Recovered/Not Resolved]
  - Haemorrhoids [Recovering/Resolving]
  - Tongue disorder [Not Recovered/Not Resolved]
  - Dizziness [Not Recovered/Not Resolved]
  - Dyspnoea [Not Recovered/Not Resolved]
  - Speech disorder [Not Recovered/Not Resolved]
  - Dysgeusia [Not Recovered/Not Resolved]
  - Anxiety [Unknown]
  - Rash papular [Not Recovered/Not Resolved]

NARRATIVE: CASE EVENT DATE: 201610
